FAERS Safety Report 5138719-X (Version None)
Quarter: 2006Q4

REPORT INFORMATION
  Report Type: 
  Country: None (occurrence: None)
  Receive Date: 20061030
  Receipt Date: 20061019
  Transmission Date: 20070319
  Serious: Yes (Hospitalization)
  Sender: FDA-Public Use
  Company Number: IT-ROCHE-467848

PATIENT
  Age: 80 Year
  Sex: Female

DRUGS (1)
  1. ROCEPHIN [Suspect]
     Indication: URINARY TRACT INFECTION
     Dosage: FORMULATION REPORTED AS VIAL.
     Route: 030
     Dates: start: 20061002, end: 20061010

REACTIONS (2)
  - OEDEMA [None]
  - PRURITUS GENERALISED [None]
